FAERS Safety Report 25024728 (Version 1)
Quarter: 2025Q1

REPORT INFORMATION
  Report Type: Spontaneous
  Country: US (occurrence: US)
  Receive Date: 20250228
  Receipt Date: 20250228
  Transmission Date: 20250409
  Serious: Yes (Hospitalization)
  Sender: ROCHE
  Company Number: US-ROCHE-10000219391

PATIENT
  Sex: Female

DRUGS (11)
  1. XOLAIR [Suspect]
     Active Substance: OMALIZUMAB
     Indication: Asthma
     Route: 058
  2. ALBUTEROL SU AER 108 (90) [Concomitant]
  3. Baclofen Tab 5 mg [Concomitant]
  4. BUSPIRONE HC TAB 15MG [Concomitant]
  5. Desvenlafaxine Tab 50 mg [Concomitant]
  6. Epinephrine Sol 1 mg/mL [Concomitant]
  7. FLUTICASONE-AEP 500-50MC [Concomitant]
  8. LORAZEPAM TAB 0.5MG [Concomitant]
  9. METOPROLOL S TB2 50MG [Concomitant]
  10. MIRTAZAPINE TAB 15MG [Concomitant]
  11. SPIRIVA HANDIHALER [Concomitant]
     Active Substance: TIOTROPIUM BROMIDE MONOHYDRATE

REACTIONS (1)
  - COVID-19 [Recovered/Resolved]
